FAERS Safety Report 13919996 (Version 2)
Quarter: 2018Q2

REPORT INFORMATION
  Report Type: Spontaneous
  Country: US (occurrence: US)
  Receive Date: 20170830
  Receipt Date: 20180507
  Transmission Date: 20180711
  Serious: No
  Sender: FDA-Public Use
  Company Number: US-PFIZER INC-2017371302

PATIENT

DRUGS (2)
  1. VIAGRA [Suspect]
     Active Substance: SILDENAFIL CITRATE
     Dosage: 100 MG, UNK
  2. MOTRIN [Suspect]
     Active Substance: IBUPROFEN

REACTIONS (2)
  - Incorrect dose administered [Unknown]
  - Erection increased [Unknown]
